FAERS Safety Report 6961216-3 (Version None)
Quarter: 2010Q3

REPORT INFORMATION
  Report Type: 
  Country: None (occurrence: None)
  Receive Date: 20100901
  Receipt Date: 20100830
  Transmission Date: 20110219
  Serious: Yes (Hospitalization)
  Sender: FDA-Public Use
  Company Number: A0878094A

PATIENT
  Sex: Female

DRUGS (6)
  1. ALLI [Suspect]
     Dosage: 1CAP SINGLE DOSE
     Route: 048
     Dates: start: 20100812
  2. L-CARNITINE [Concomitant]
     Dosage: 5000MG PER DAY
     Route: 048
  3. ASCORBIC ACID [Concomitant]
     Dosage: 1500MG PER DAY
     Route: 048
  4. VITAMIN B-12 [Concomitant]
     Route: 048
  5. VITAMIN B1 TAB [Concomitant]
     Route: 048
  6. COENZYME Q10 [Concomitant]
     Route: 048

REACTIONS (8)
  - APHASIA [None]
  - COMMUNICATION DISORDER [None]
  - COMPLEX PARTIAL SEIZURES [None]
  - CONVULSION [None]
  - FEELING HOT [None]
  - HYPOAESTHESIA [None]
  - MENTAL IMPAIRMENT [None]
  - SPEECH DISORDER [None]
